FAERS Safety Report 19563639 (Version 4)
Quarter: 2021Q3

REPORT INFORMATION
  Report Type: Report from Study
  Country: PL (occurrence: PL)
  Receive Date: 20210715
  Receipt Date: 20210823
  Transmission Date: 20211014
  Serious: Yes (Death)
  Sender: FDA-Public Use
  Company Number: NVSC2021PL156907

PATIENT
  Age: 39 Year
  Sex: Female
  Weight: 72 kg

DRUGS (6)
  1. MOCLOBEMIDE [Concomitant]
     Active Substance: MOCLOBEMIDE
     Indication: DEPRESSION
     Dosage: UNK
     Route: 065
     Dates: start: 20180701
  2. ANASTROZOLE. [Suspect]
     Active Substance: ANASTROZOLE
     Indication: HER2 NEGATIVE BREAST CANCER
     Dosage: 1 MG, UNK
     Route: 048
     Dates: start: 20200709, end: 2021
  3. GOSERELIN [Suspect]
     Active Substance: GOSERELIN
     Indication: HER2 NEGATIVE BREAST CANCER
     Dosage: 3.6 MG, UNK
     Route: 058
     Dates: start: 20200124, end: 20210611
  4. MOCLOBEMIDE [Concomitant]
     Active Substance: MOCLOBEMIDE
     Dosage: 150 MG, BID
     Route: 048
     Dates: start: 20210327, end: 20210612
  5. LEE011 [Suspect]
     Active Substance: RIBOCICLIB
     Indication: HER2 NEGATIVE BREAST CANCER
     Dosage: 400 MG, UNK
     Route: 048
     Dates: start: 20200709, end: 20210517
  6. IBANDRONIC ACID. [Concomitant]
     Active Substance: IBANDRONIC ACID
     Indication: PROPHYLAXIS
     Dosage: 150 MG, QMO
     Route: 048
     Dates: start: 20210610

REACTIONS (1)
  - Cardiac arrest [Fatal]

NARRATIVE: CASE EVENT DATE: 20210708
